FAERS Safety Report 4604095-1 (Version None)
Quarter: 2005Q1

REPORT INFORMATION
  Report Type: 
  Country: None (occurrence: None)
  Receive Date: 20050309
  Receipt Date: 20050309
  Transmission Date: 20050727
  Serious: Yes (Life-Threatening)
  Sender: FDA-Public Use
  Company Number: None

PATIENT
  Age: 59 Year
  Sex: Female
  Weight: 84 kg

DRUGS (1)
  1. METFORMIN     1000 MG [Suspect]
     Indication: DIABETES MELLITUS
     Dosage: 1000 MG   TWICE DAILY   ORAL
     Route: 048
     Dates: start: 20050101, end: 20050303

REACTIONS (4)
  - ACIDOSIS [None]
  - BLOOD LACTIC ACID INCREASED [None]
  - CARDIO-RESPIRATORY ARREST [None]
  - RENAL FAILURE ACUTE [None]
